FAERS Safety Report 5203922-7 (Version None)
Quarter: 2007Q1

REPORT INFORMATION
  Report Type: 
  Country: None (occurrence: None)
  Receive Date: 20070109
  Receipt Date: 20070109
  Transmission Date: 20070707
  Serious: No
  Sender: FDA-Public Use
  Company Number: None

PATIENT
  Age: 60 Year
  Sex: Male
  Weight: 90.7194 kg

DRUGS (6)
  1. LEVAQUIN [Suspect]
     Indication: BRONCHITIS
     Dosage: 1 TABLET ONCE DAILY ORALLY
     Route: 048
     Dates: start: 20061209
  2. LEVAQUIN [Suspect]
     Indication: BRONCHITIS
     Dosage: 1 TABLET ONCE DAILY ORALLY
     Route: 048
     Dates: start: 20061219
  3. TUSSIONEX PENNKINETIC SUSP [Concomitant]
  4. ACYCLOVIR [Concomitant]
  5. LISINOPRIL [Concomitant]
  6. AMITRIPTYLINE HCL [Concomitant]

REACTIONS (2)
  - HAIR COLOUR CHANGES [None]
  - HYPOTRICHOSIS [None]
